FAERS Safety Report 23680978 (Version 1)
Quarter: 2024Q1

REPORT INFORMATION
  Report Type: Spontaneous
  Country: US (occurrence: US)
  Receive Date: 20240328
  Receipt Date: 20240328
  Transmission Date: 20240410
  Serious: No
  Sender: FDA-Public Use
  Company Number: US-SHIONOGUS-20240300208

PATIENT

DRUGS (1)
  1. SYMPROIC [Suspect]
     Active Substance: NALDEMEDINE
     Indication: Product used for unknown indication
     Dosage: 0.2 MILLIGRAM, UNKNOWN
     Route: 065

REACTIONS (3)
  - Product dose omission issue [Unknown]
  - Product use issue [Unknown]
  - Inability to afford medication [Unknown]

NARRATIVE: CASE EVENT DATE: 20240101
